FAERS Safety Report 8345021 (Version 2)
Quarter: 2013Q2

REPORT INFORMATION
  Report Type: Spontaneous
  Country: US (occurrence: US)
  Receive Date: 20120120
  Receipt Date: 20130611
  Transmission Date: 20140414
  Serious: Yes (Life-Threatening, Hospitalization, Other)
  Sender: FDA-Public Use
  Company Number: US-B.I. PHARMACEUTICALS,INC./RIDGEFIELD-2012-BP-01062BP

PATIENT
  Age: 87 Year
  Sex: Female

DRUGS (10)
  1. PRADAXA [Suspect]
     Indication: ATRIAL FIBRILLATION
     Dosage: 300 MG
     Route: 048
     Dates: start: 20111228
  2. ASPIRIN [Suspect]
     Indication: CORONARY ARTERY DISEASE
     Dosage: 81 MG
     Route: 048
     Dates: start: 20111228
  3. V-C FORTE [Concomitant]
  4. LIPITOR [Concomitant]
     Dosage: 20 MG
     Route: 048
  5. SPIRIVA [Concomitant]
     Dosage: 18 MCG
     Route: 055
  6. METOPROLOL [Concomitant]
     Dosage: 50 MG
  7. METOLAZONE [Concomitant]
     Indication: CARDIAC FAILURE CONGESTIVE
     Route: 048
  8. BENICAR [Concomitant]
     Dosage: 40 MG
     Route: 048
  9. BACTRIM DS [Concomitant]
     Dosage: STRENGHT: 1TAB, DAILY DOSE: 1TAB BID
     Route: 048
  10. BUMEX [Concomitant]
     Dosage: 2 MG
     Route: 048

REACTIONS (4)
  - Epistaxis [Recovered/Resolved]
  - Gastrointestinal haemorrhage [Not Recovered/Not Resolved]
  - Renal failure acute [Recovered/Resolved]
  - Occult blood [Recovered/Resolved]
